FAERS Safety Report 7217639-0 (Version None)
Quarter: 2011Q1

REPORT INFORMATION
  Report Type: 
  Country: None (occurrence: None)
  Receive Date: 20110110
  Receipt Date: 20101227
  Transmission Date: 20110831
  Serious: Yes (Death, Other)
  Sender: FDA-Public Use
  Company Number: CH-ROCHE-751447

PATIENT
  Sex: Male

DRUGS (5)
  1. MYCOPHENOLATE MOFETIL [Suspect]
     Route: 065
  2. PREDNISONE [Concomitant]
     Dosage: TAPERED DOSE AT THREE MONTHS POST-TRANSPLANTATION
  3. TACROLIMUS [Suspect]
     Dosage: TARGETED PLASMA LEVELS BETWEEN 8 AND 10 NG/ML
     Route: 065
  4. VALGANCICLOVIR HCL [Suspect]
     Route: 048
  5. METHYLPREDNISOLONE [Concomitant]
     Dosage: DAILY FOR FIRST THREE DAYS
     Route: 040

REACTIONS (3)
  - SEPTIC SHOCK [None]
  - MULTI-ORGAN FAILURE [None]
  - CYTOMEGALOVIRUS COLITIS [None]
